FAERS Safety Report 18887147 (Version 5)
Quarter: 2024Q1

REPORT INFORMATION
  Report Type: Report from Study
  Country: US (occurrence: US)
  Receive Date: 20210212
  Receipt Date: 20240206
  Transmission Date: 20240409
  Serious: Yes (Hospitalization, Other)
  Sender: FDA-Public Use
  Company Number: US-TAKEDA-US202032917

PATIENT
  Sex: Female

DRUGS (3)
  1. HUMAN IMMUNOGLOBULIN G [Suspect]
     Active Substance: HUMAN IMMUNOGLOBULIN G
     Indication: Immunodeficiency common variable
     Dosage: 30 GRAM, Q2WEEKS
     Route: 065
  2. HUMAN IMMUNOGLOBULIN G [Suspect]
     Active Substance: HUMAN IMMUNOGLOBULIN G
     Indication: Primary immunodeficiency syndrome
  3. COVID-19 VACCINE NOS [Suspect]
     Active Substance: COVID-19 VACCINE NOS
     Indication: Product used for unknown indication
     Dosage: UNK
     Route: 065

REACTIONS (17)
  - Pneumonia [Unknown]
  - COVID-19 [Unknown]
  - Skin cancer [Unknown]
  - Infection [Unknown]
  - Urinary tract infection [Unknown]
  - Renal cyst [Unknown]
  - Swelling [Unknown]
  - Chest pain [Recovering/Resolving]
  - Hypervolaemia [Unknown]
  - Cancer pain [Unknown]
  - Peripheral swelling [Unknown]
  - Allergy to vaccine [Unknown]
  - Herpes zoster [Unknown]
  - Cardiac disorder [Unknown]
  - Chest discomfort [Unknown]
  - Nausea [Recovering/Resolving]
  - Incorrect drug administration rate [Unknown]
